FAERS Safety Report 13524139 (Version 1)
Quarter: 2017Q2

REPORT INFORMATION
  Report Type: Spontaneous
  Country: GB (occurrence: GB)
  Receive Date: 20170508
  Receipt Date: 20170508
  Transmission Date: 20170830
  Serious: Yes (Other)
  Sender: FDA-Public Use
  Company Number: GB-TEVA-764506ACC

PATIENT
  Age: 63 Year
  Sex: Male
  Weight: 113 kg

DRUGS (6)
  1. INSULIN SOURCE UNSPECIFIED [Concomitant]
  2. VIAGRA [Concomitant]
     Active Substance: SILDENAFIL CITRATE
  3. DOXYCYCLINE. [Suspect]
     Active Substance: DOXYCYCLINE
     Indication: FURUNCLE
     Route: 048
     Dates: start: 20170406, end: 20170411
  4. VITAMIN B12 [Concomitant]
     Active Substance: CYANOCOBALAMIN
  5. RAMIPRIL. [Concomitant]
     Active Substance: RAMIPRIL
  6. THYROXINE [Concomitant]
     Active Substance: LEVOTHYROXINE

REACTIONS (1)
  - Depression [Recovered/Resolved]

NARRATIVE: CASE EVENT DATE: 20170407
